FAERS Safety Report 13873340 (Version 1)
Quarter: 2017Q3

REPORT INFORMATION
  Report Type: Spontaneous
  Country: US (occurrence: US)
  Receive Date: 20170816
  Receipt Date: 20170816
  Transmission Date: 20171127
  Serious: No
  Sender: FDA-Public Use
  Company Number: US-MALLINCKRODT-T201604115

PATIENT
  Age: 38 Year
  Sex: Male
  Weight: 73 kg

DRUGS (1)
  1. OXYCODONE [Suspect]
     Active Substance: OXYCODONE
     Indication: PAIN
     Dosage: 30 MG, 5X/DAY
     Route: 048
     Dates: start: 20160825

REACTIONS (4)
  - Drug withdrawal syndrome [Recovered/Resolved]
  - Mobility decreased [Not Recovered/Not Resolved]
  - Drug effect incomplete [Unknown]
  - Product quality issue [Unknown]

NARRATIVE: CASE EVENT DATE: 201608
